FAERS Safety Report 5793757-9 (Version None)
Quarter: 2008Q2

REPORT INFORMATION
  Report Type: 
  Country: None (occurrence: None)
  Receive Date: 20080627
  Receipt Date: 20080619
  Transmission Date: 20081010
  Serious: Yes (Other)
  Sender: FDA-Public Use
  Company Number: US-PFIZER INC-2008052140

PATIENT

DRUGS (2)
  1. LIPITOR [Suspect]
  2. MS CONTIN [Concomitant]

REACTIONS (3)
  - DISORIENTATION [None]
  - ILL-DEFINED DISORDER [None]
  - RHABDOMYOLYSIS [None]
